FAERS Safety Report 9704228 (Version 3)
Quarter: 2017Q2

REPORT INFORMATION
  Report Type: Report from Study
  Country: IT (occurrence: IT)
  Receive Date: 20131122
  Receipt Date: 20170501
  Transmission Date: 20170830
  Serious: Yes (Other)
  Sender: FDA-Public Use
  Company Number: IT-ROCHE-1305761

PATIENT
  Sex: Female

DRUGS (3)
  1. VINORELBINE [Suspect]
     Active Substance: VINORELBINE\VINORELBINE TARTRATE
     Dosage: ON DAY 1 AND 8
     Route: 048
  2. CAPECITABINE. [Suspect]
     Active Substance: CAPECITABINE
     Indication: BREAST CANCER METASTATIC
     Dosage: DAY 1-14 OF EACH CYCLE
     Route: 048
  3. VINORELBINE [Suspect]
     Active Substance: VINORELBINE\VINORELBINE TARTRATE
     Indication: BREAST CANCER METASTATIC
     Dosage: ON DAY 1 AND 8 FOR CYCLE 1.
     Route: 048

REACTIONS (27)
  - Febrile neutropenia [Unknown]
  - Peripheral sensory neuropathy [Unknown]
  - Nausea [Unknown]
  - Ileus [Unknown]
  - Constipation [Unknown]
  - Dyspnoea [Unknown]
  - Pulmonary embolism [Unknown]
  - Neutropenic infection [Unknown]
  - Infection [Unknown]
  - Diarrhoea [Unknown]
  - Fatigue [Unknown]
  - Stomatitis [Unknown]
  - Dehydration [Unknown]
  - Back pain [Unknown]
  - Vomiting [Unknown]
  - Urinary tract infection [Unknown]
  - Anaemia [Unknown]
  - Syncope [Unknown]
  - Neutropenia [Unknown]
  - Palmar-plantar erythrodysaesthesia syndrome [Unknown]
  - Decreased appetite [Unknown]
  - Hip fracture [Unknown]
  - Abdominal pain [Unknown]
  - Pleural effusion [Unknown]
  - Deep vein thrombosis [Unknown]
  - Myalgia [Unknown]
  - Paraesthesia [Unknown]
